FAERS Safety Report 8332854-0 (Version None)
Quarter: 2012Q2

REPORT INFORMATION
  Report Type: 
  Country: None (occurrence: None)
  Receive Date: 20120503
  Receipt Date: 20120423
  Transmission Date: 20120825
  Serious: Yes (Hospitalization, Other)
  Sender: FDA-Public Use
  Company Number: JP-ABBOTT-12P-087-0928396-00

PATIENT
  Sex: Female

DRUGS (8)
  1. SULFAMETHOXAZOLE AND TRIMETHOPRIM [Concomitant]
     Indication: PNEUMOCYSTIS JIROVECI PNEUMONIA
  2. HUMIRA [Suspect]
     Indication: PUSTULAR PSORIASIS
     Dates: end: 20120404
  3. ISONIAZID [Concomitant]
     Indication: PROPHYLAXIS
     Dosage: 300 MILLIGRAM DAILY
     Route: 048
     Dates: start: 20110726, end: 20120413
  4. CLOSTRIDIUM BUTYRICUM [Concomitant]
     Indication: PRODUCT USED FOR UNKNOWN INDICATION
     Dosage: 3 DOSAGE FORMS DAILY
     Route: 048
     Dates: start: 20110726, end: 20120413
  5. HUMIRA [Suspect]
     Indication: PSORIATIC ARTHROPATHY
     Route: 058
     Dates: start: 20120208, end: 20120208
  6. SULFAMETHOXAZOLE AND TRIMETHOPRIM [Concomitant]
     Indication: PROPHYLAXIS
     Dosage: 0.5 DOSAGE FORMS DAILY
     Route: 048
     Dates: start: 20120314, end: 20120423
  7. PREDNISOLONE [Concomitant]
     Indication: PROPHYLAXIS
     Dosage: 25 MILLIGRAMS DAILY
     Route: 048
     Dates: start: 20120208, end: 20120413
  8. PREDNISOLONE [Concomitant]
     Indication: ANAPHYLACTIC REACTION

REACTIONS (3)
  - BLOOD PRESSURE IMMEASURABLE [None]
  - ANAPHYLACTIC REACTION [None]
  - LOSS OF CONSCIOUSNESS [None]
